FAERS Safety Report 5768576-X (Version None)
Quarter: 2008Q2

REPORT INFORMATION
  Report Type: 
  Country: None (occurrence: None)
  Receive Date: 20080612
  Receipt Date: 20080307
  Transmission Date: 20081010
  Serious: No
  Sender: FDA-Public Use
  Company Number: US-ABBOTT-08P-163-0441950-00

PATIENT
  Sex: Male
  Weight: 56.75 kg

DRUGS (5)
  1. HUMIRA [Suspect]
     Indication: CROHN'S DISEASE
     Route: 058
     Dates: start: 20070101, end: 20080130
  2. MESALAMINE [Concomitant]
     Indication: CROHN'S DISEASE
  3. BUDESONIDE [Concomitant]
     Indication: CROHN'S DISEASE
  4. PROBIOTICS [Concomitant]
     Indication: CROHN'S DISEASE
  5. ACETAMINOPHEN [Concomitant]
     Indication: DRUG USE FOR UNKNOWN INDICATION

REACTIONS (2)
  - NASAL CONGESTION [None]
  - TINNITUS [None]
